FAERS Safety Report 6187686-9 (Version None)
Quarter: 2009Q2

REPORT INFORMATION
  Report Type: 
  Country: None (occurrence: None)
  Receive Date: 20090511
  Receipt Date: 20090424
  Transmission Date: 20091009
  Serious: Yes (Other)
  Sender: FDA-Public Use
  Company Number: PAR_02964_2009

PATIENT
  Sex: Male

DRUGS (14)
  1. IBUPROFEN [Suspect]
     Indication: DRUG USE FOR UNKNOWN INDICATION
     Dosage: (600 MG TID)
     Dates: start: 20090219, end: 20090312
  2. RIVAROXABAN [Suspect]
     Indication: KNEE ARTHROPLASTY
     Dosage: (DF ORAL)
     Route: 048
     Dates: start: 20090219, end: 20090302
  3. RIVAROXABAN [Suspect]
     Indication: THROMBOSIS PROPHYLAXIS
     Dosage: (DF ORAL)
     Route: 048
     Dates: start: 20090219, end: 20090302
  4. MOBLOC [Concomitant]
  5. NOVALGIN  /00169801/ [Concomitant]
  6. PANTOZOL  /01263202/ [Concomitant]
  7. TARGIN [Concomitant]
  8. ZOPLICONE [Concomitant]
  9. ACETAMINOPHEN [Concomitant]
  10. CEFAZOLIN [Concomitant]
  11. PRADAXA [Concomitant]
  12. RAPIFEN  /00676302/ [Concomitant]
  13. PROPOFOL [Concomitant]
  14. JONOSTERIL /00351401/ [Concomitant]

REACTIONS (6)
  - ANAEMIA [None]
  - DRUG INTOLERANCE [None]
  - HAEMATOMA [None]
  - JOINT RANGE OF MOTION DECREASED [None]
  - OSTEOARTHRITIS [None]
  - POST PROCEDURAL HAEMORRHAGE [None]
